FAERS Safety Report 4381638-7 (Version None)
Quarter: 2004Q2

REPORT INFORMATION
  Report Type: 
  Country: None (occurrence: None)
  Receive Date: 20040621
  Receipt Date: 20040614
  Transmission Date: 20050107
  Serious: Yes (Other)
  Sender: FDA-Public Use
  Company Number: GB-ROCHE-370978

PATIENT
  Sex: Male
  Weight: 146 kg

DRUGS (4)
  1. ORLISTAT [Suspect]
     Indication: OBESITY
     Route: 048
     Dates: start: 20040524, end: 20040528
  2. ATENOLOL [Concomitant]
     Indication: HYPERTENSION
     Route: 048
  3. RANITIDINE [Concomitant]
     Indication: DYSPEPSIA
     Route: 048
  4. OXAZEPAM [Concomitant]
     Indication: INSOMNIA
     Route: 048

REACTIONS (2)
  - DEPRESSION [None]
  - SUICIDAL IDEATION [None]
